FAERS Safety Report 21942518 (Version 1)
Quarter: 2023Q1

REPORT INFORMATION
  Report Type: Report from Study
  Country: US (occurrence: US)
  Receive Date: 20230202
  Receipt Date: 20230202
  Transmission Date: 20230418
  Serious: No
  Sender: FDA-Public Use
  Company Number: US-EXELIXIS-CABO-22057824

PATIENT
  Age: 60 Year
  Sex: Male

DRUGS (6)
  1. CABOMETYX [Suspect]
     Active Substance: CABOZANTINIB S-MALATE
     Indication: Renal cell carcinoma
     Dosage: 40 MG, QD
     Dates: start: 20221020
  2. ONDANSETRON [Concomitant]
     Active Substance: ONDANSETRON
  3. OXYCODONE [Concomitant]
     Active Substance: OXYCODONE
  4. TYLENOL [Concomitant]
     Active Substance: ACETAMINOPHEN
  5. SENOKOT [Concomitant]
     Active Substance: SENNOSIDES
  6. STOOL SOFTENER (DOCUSATE) [Concomitant]
     Active Substance: DOCUSATE

REACTIONS (18)
  - White blood cell disorder [Unknown]
  - Infection [Unknown]
  - Insomnia [Recovering/Resolving]
  - Tendon pain [Not Recovered/Not Resolved]
  - Anal incontinence [Recovered/Resolved]
  - Abdominal discomfort [Recovering/Resolving]
  - Pruritus [Unknown]
  - Abdominal pain [Recovered/Resolved]
  - Decreased appetite [Not Recovered/Not Resolved]
  - Nausea [Recovered/Resolved]
  - Vomiting [Recovered/Resolved]
  - Diarrhoea [Recovered/Resolved]
  - Dry skin [Recovered/Resolved]
  - Taste disorder [Recovering/Resolving]
  - Weight decreased [Not Recovered/Not Resolved]
  - Constipation [Unknown]
  - Asthenia [Unknown]
  - Decubitus ulcer [Unknown]

NARRATIVE: CASE EVENT DATE: 20221202
